FAERS Safety Report 4635902-4 (Version None)
Quarter: 2005Q2

REPORT INFORMATION
  Report Type: 
  Country: None (occurrence: None)
  Receive Date: 20050415
  Receipt Date: 20050210
  Transmission Date: 20051028
  Serious: Yes (Other)
  Sender: FDA-Public Use
  Company Number: JP-BRISTOL-MYERS SQUIBB COMPANY-12860219

PATIENT
  Age: 49 Year
  Sex: Female

DRUGS (3)
  1. BLEO [Suspect]
     Indication: YOLK SAC TUMOUR SITE UNSPECIFIED
     Route: 058
     Dates: start: 20040914, end: 20041116
  2. LASTET [Concomitant]
     Indication: YOLK SAC TUMOUR SITE UNSPECIFIED
     Route: 042
     Dates: start: 20040913, end: 20041119
  3. CISPLATIN [Concomitant]
     Indication: YOLK SAC TUMOUR SITE UNSPECIFIED
     Route: 042
     Dates: start: 20040913, end: 20041119

REACTIONS (4)
  - OEDEMA [None]
  - PRURITUS [None]
  - RASH [None]
  - SCAB [None]
